FAERS Safety Report 11398889 (Version 1)
Quarter: 2015Q3

REPORT INFORMATION
  Report Type: Spontaneous
  Country: NO (occurrence: NO)
  Receive Date: 20150820
  Receipt Date: 20150820
  Transmission Date: 20151125
  Serious: Yes (Life-Threatening, Hospitalization, Disabling)
  Sender: FDA-Public Use
  Company Number: NO-ELI_LILLY_AND_COMPANY-NO201508003080

PATIENT
  Sex: Male
  Weight: 110 kg

DRUGS (2)
  1. ABILIFY [Suspect]
     Active Substance: ARIPIPRAZOLE
     Indication: SCHIZOPHRENIA
     Dosage: 30 MG, UNKNOWN
     Route: 065
     Dates: start: 2006, end: 201409
  2. ZYPREXA [Suspect]
     Active Substance: OLANZAPINE
     Indication: SCHIZOPHRENIA, PARANOID TYPE
     Dosage: UNK, UNKNOWN
     Route: 065
     Dates: start: 1999, end: 2006

REACTIONS (7)
  - Myocardial infarction [Recovered/Resolved with Sequelae]
  - Type 2 diabetes mellitus [Not Recovered/Not Resolved]
  - Metabolic disorder [Unknown]
  - Overweight [Recovering/Resolving]
  - Localised infection [Unknown]
  - Anaemia [Unknown]
  - Abnormal weight gain [Recovered/Resolved with Sequelae]

NARRATIVE: CASE EVENT DATE: 2000
